FAERS Safety Report 6999852-0 (Version None)
Quarter: 2010Q3

REPORT INFORMATION
  Report Type: 
  Country: None (occurrence: None)
  Receive Date: 20100920
  Receipt Date: 20070817
  Transmission Date: 20110219
  Serious: No
  Sender: FDA-Public Use
  Company Number: US-ASTRAZENECA-2007UW10880

PATIENT
  Age: 13 Year
  Sex: Male
  Weight: 159.2 kg

DRUGS (21)
  1. SEROQUEL [Suspect]
     Indication: ATTENTION DEFICIT/HYPERACTIVITY DISORDER
     Dosage: STRENGTH: 25 MG-100 MG, DOSE 100 MG AT NIGHT
     Route: 048
     Dates: start: 19991101
  2. SEROQUEL [Suspect]
     Indication: BIPOLAR DISORDER
     Dosage: STRENGTH: 25 MG-100 MG, DOSE 100 MG AT NIGHT
     Route: 048
     Dates: start: 19991101
  3. SEROQUEL [Suspect]
     Indication: OBSESSIVE-COMPULSIVE DISORDER
     Dosage: STRENGTH: 25 MG-100 MG, DOSE 100 MG AT NIGHT
     Route: 048
     Dates: start: 19991101
  4. SEROQUEL [Suspect]
     Route: 048
     Dates: start: 19991101, end: 20040401
  5. SEROQUEL [Suspect]
     Route: 048
     Dates: start: 19991101, end: 20040401
  6. SEROQUEL [Suspect]
     Route: 048
     Dates: start: 19991101, end: 20040401
  7. RISPERDAL [Concomitant]
     Dates: start: 19990101, end: 20000101
  8. RISPERDAL [Concomitant]
     Dosage: DOSE: 0.5 MG-1.0 MG AT NIGHT
     Dates: start: 19991220
  9. ZYPREXA [Concomitant]
  10. MERIDIA [Concomitant]
     Dates: start: 20051109
  11. GLUCOPHAGE XR [Concomitant]
     Dosage: DOSE: 500 MG-100 MG DAILY
     Dates: start: 20050927
  12. ADDERALL 10 [Concomitant]
     Dosage: DOSE: 10 MG-60 MG DAILY
     Dates: start: 19991101
  13. CLONIDINE [Concomitant]
     Route: 048
     Dates: start: 19991101
  14. DESYREL [Concomitant]
     Dosage: DOSE: 50-200 MG ORAL AT NIGHT
     Route: 048
     Dates: start: 19991101
  15. BUSPAR [Concomitant]
     Indication: AGGRESSION
     Dates: start: 19991101
  16. DEPAKOTE [Concomitant]
     Indication: BIPOLAR DISORDER
     Dates: start: 19991101
  17. METADATE CD [Concomitant]
     Route: 048
     Dates: start: 20020703
  18. GUAIFEN PSE ER [Concomitant]
     Dosage: DOSE: TAKE ONE TABLET ORAL TWO TIMES A DAY AS REQUIRED
     Dates: start: 20030122
  19. ALBUTEROL [Concomitant]
     Dates: start: 20020716
  20. NAPROXEN [Concomitant]
     Dates: start: 20080424
  21. SONATA [Concomitant]
     Dates: start: 20020706

REACTIONS (5)
  - DIABETES MELLITUS [None]
  - GLUCOSE TOLERANCE IMPAIRED [None]
  - IMPAIRED FASTING GLUCOSE [None]
  - SLEEP APNOEA SYNDROME [None]
  - WEIGHT INCREASED [None]
